FAERS Safety Report 20389270 (Version 1)
Quarter: 2022Q1

REPORT INFORMATION
  Report Type: Report from Study
  Country: CA (occurrence: CA)
  Receive Date: 20220128
  Receipt Date: 20220128
  Transmission Date: 20220423
  Serious: Yes (Other)
  Sender: FDA-Public Use
  Company Number: CA-BAUSCH-BL-2022-002260

PATIENT
  Age: 65 Year
  Sex: Female

DRUGS (1)
  1. SILIQ [Suspect]
     Active Substance: BRODALUMAB
     Indication: Psoriasis
     Dosage: 210MG/ 1.5 ML, INDUCTION WEEKLY, WEEK 0, WEEK-1, 20-JAN-2022
     Route: 058
     Dates: start: 20220113

REACTIONS (1)
  - Blood pressure systolic increased [Unknown]

NARRATIVE: CASE EVENT DATE: 20220101
